FAERS Safety Report 7065559-7 (Version None)
Quarter: 2010Q4

REPORT INFORMATION
  Report Type: 
  Country: None (occurrence: None)
  Receive Date: 20101019
  Receipt Date: 20101005
  Transmission Date: 20110411
  Serious: Yes (Hospitalization)
  Sender: FDA-Public Use
  Company Number: 2010-3201

PATIENT
  Age: 27 Year
  Sex: Male

DRUGS (6)
  1. DYSPORT [Suspect]
     Indication: HEMIPARESIS
     Dosage: 1800 UNITS (1800 UNITS, SINGLE CYCLE), INTRAMUSCULAR
     Route: 030
     Dates: start: 20100819, end: 20100819
  2. BENADRYL ALLERGY (BENADRYL ALLERGY /01454801/) [Concomitant]
  3. DIDRONEL [Concomitant]
  4. IBUPROFEN [Concomitant]
  5. MULTIVITAMINS WITH MINERALS (MULTIVITAMINS WITH MINERALS) [Concomitant]
  6. PROZAC [Concomitant]

REACTIONS (6)
  - DYSARTHRIA [None]
  - DYSPHAGIA [None]
  - DYSPNOEA [None]
  - HEMIPARESIS [None]
  - OVERDOSE [None]
  - WRONG TECHNIQUE IN DRUG USAGE PROCESS [None]
